FAERS Safety Report 8724899 (Version 2)
Quarter: 2012Q4

REPORT INFORMATION
  Report Type: 
  Country: US (occurrence: US)
  Receive Date: 20120815
  Receipt Date: 20121130
  Transmission Date: 20130627
  Serious: Yes (Hospitalization)
  Sender: FDA-Public Use
  Company Number: US-ROCHE-1099657

PATIENT
  Age: 14 Year
  Sex: Female
  Weight: 36 kg

DRUGS (2)
  1. NUTROPIN [Suspect]
     Indication: PRODUCT USED FOR UNKNOWN INDICATION
     Route: 065
  2. MORPHINE [Suspect]
     Indication: PRODUCT USED FOR UNKNOWN INDICATION
     Route: 065

REACTIONS (3)
  - Oedema [Recovered/Resolved]
  - Blood creatinine increased [Recovered/Resolved]
  - Nausea [Unknown]
